FAERS Safety Report 21190257 (Version 1)
Quarter: 2022Q3

REPORT INFORMATION
  Report Type: Spontaneous
  Country: NL (occurrence: NL)
  Receive Date: 20220809
  Receipt Date: 20220809
  Transmission Date: 20221027
  Serious: Yes (Life-Threatening, Hospitalization, Other)
  Sender: FDA-Public Use
  Company Number: NL-AMGEN-NLDSP2022132045

PATIENT
  Sex: Female
  Weight: 65 kg

DRUGS (11)
  1. BEVACIZUMAB [Suspect]
     Active Substance: BEVACIZUMAB
     Indication: Hepatocellular carcinoma
     Dosage: 975 MILLIGRAM, Q3WK (STARTED CYCLE 1, AVASTIN 1)
     Route: 065
     Dates: start: 20220614, end: 20220712
  2. ATEZOLIZUMAB [Suspect]
     Active Substance: ATEZOLIZUMAB
     Indication: Hepatocellular carcinoma
     Dosage: 1200 MILLIGRAM, Q3WK, STARTED CYCLE 1
     Route: 065
     Dates: start: 20220614
  3. ACETAMINOPHEN [Concomitant]
     Active Substance: ACETAMINOPHEN
     Dosage: 500 MILLIGRAM
  4. TEMAZEPAM [Concomitant]
     Active Substance: TEMAZEPAM
     Dosage: 10 MILLIGRAM
  5. URSODIOL [Concomitant]
     Active Substance: URSODIOL
     Dosage: 300 MILLIGRAM, 2D
  6. FENTANYL [Concomitant]
     Active Substance: FENTANYL
     Dosage: 100 MICROGRAM
  7. SPIRONOLACTONE [Concomitant]
     Active Substance: SPIRONOLACTONE
     Dosage: 50 MILLIGRAM, QD
  8. PANTOPRAZOLE SODIUM [Concomitant]
     Active Substance: PANTOPRAZOLE SODIUM
     Dosage: 40 MILLIGRAM, QD
  9. PAROXETINE HYDROCHLORIDE [Concomitant]
     Active Substance: PAROXETINE HYDROCHLORIDE
     Dosage: 20 MILLIGRAM, 1D1EN
  10. MOVICOLON [Concomitant]
     Active Substance: POLYETHYLENE GLYCOL 3350\POTASSIUM CHLORIDE\SODIUM BICARBONATE\SODIUM CHLORIDE
     Dosage: UNK UNK, QD
  11. EUTHYROX [Concomitant]
     Active Substance: LEVOTHYROXINE SODIUM
     Dosage: 50 MILLIGRAM, QD

REACTIONS (4)
  - Haemorrhage [Recovering/Resolving]
  - Hepatic haemorrhage [Unknown]
  - Off label use [Unknown]
  - Anaemia [Recovered/Resolved]

NARRATIVE: CASE EVENT DATE: 20220614
